FAERS Safety Report 7919325 (Version 5)
Quarter: 2013Q4

REPORT INFORMATION
  Report Type: Spontaneous
  Country: FR (occurrence: FR)
  Receive Date: 20110428
  Receipt Date: 20131003
  Transmission Date: 20140711
  Serious: Yes (Death, Other)
  Sender: FDA-Public Use
  Company Number: FR-GILEAD-2011-0038689

PATIENT
  Age: 0 Day
  Sex: 0

DRUGS (4)
  1. VIREAD [Suspect]
     Indication: HEPATITIS B
     Route: 064
     Dates: end: 20101001
  2. ZEFFIX [Concomitant]
     Indication: HEPATITIS B
     Route: 064
     Dates: end: 20101001
  3. PROPRANOLOL [Concomitant]
     Indication: HAEMORRHAGE
     Route: 064
  4. LACTULOSE [Concomitant]
     Indication: ENCEPHALOPATHY
     Route: 064

REACTIONS (2)
  - Stillbirth [Fatal]
  - Foetal distress syndrome [Unknown]
